FAERS Safety Report 8671427 (Version 2)
Quarter: 2012Q4

REPORT INFORMATION
  Report Type: 
  Country: GR (occurrence: GR)
  Receive Date: 20120718
  Receipt Date: 20121009
  Transmission Date: 20130627
  Serious: Yes (Hospitalization)
  Sender: FDA-Public Use
  Company Number: GR-GLAXOSMITHKLINE-B0815311A

PATIENT
  Age: 53 Year
  Sex: Female

DRUGS (2)
  1. ARIXTRA [Suspect]
     Indication: PRODUCT USED FOR UNKNOWN INDICATION
     Dosage: 2.5MG per day
     Route: 065
     Dates: end: 20120711
  2. UNKNOWN MEDICATION [Concomitant]
     Dates: end: 20120711

REACTIONS (1)
  - Hepatic enzyme increased [Recovered/Resolved]
